FAERS Safety Report 8459544-8 (Version None)
Quarter: 2012Q2

REPORT INFORMATION
  Report Type: 
  Country: None (occurrence: None)
  Receive Date: 20120622
  Receipt Date: 20120615
  Transmission Date: 20120825
  Serious: Yes (Hospitalization, Other)
  Sender: FDA-Public Use
  Company Number: JP-PFIZER INC-2012135218

PATIENT
  Age: 41 Year
  Sex: Male

DRUGS (5)
  1. GAMOFA [Concomitant]
     Indication: GASTRIC ULCER
     Dosage: 20 MG, DAILY
     Route: 048
     Dates: start: 20120512, end: 20120518
  2. ADVAIR DISKUS 100/50 [Concomitant]
     Indication: ASTHMA
     Dosage: UNK
     Route: 055
     Dates: start: 20120512
  3. UNASYN [Suspect]
     Indication: PNEUMOMEDIASTINUM
     Dosage: 375 MG, 3X/DAY
     Route: 048
     Dates: start: 20120517, end: 20120518
  4. MONTELUKAST SODIUM [Concomitant]
     Indication: ASTHMA
     Dosage: 10 MG, DAILY
     Route: 048
     Dates: start: 20120512, end: 20120518
  5. UNASYN [Suspect]
     Dosage: UNK

REACTIONS (1)
  - HAEMATOCHEZIA [None]
